FAERS Safety Report 5657618-8 (Version None)
Quarter: 2008Q1

REPORT INFORMATION
  Report Type: 
  Country: None (occurrence: None)
  Receive Date: 20080307
  Receipt Date: 20080307
  Transmission Date: 20080703
  Serious: Yes (Hospitalization)
  Sender: FDA-Public Use
  Company Number: None

PATIENT
  Sex: Female
  Weight: 58.9676 kg

DRUGS (2)
  1. AVASTIN [Suspect]
     Indication: BREAST CANCER
     Dosage: 590MG Q14D IV DRIP
     Route: 041
  2. ONXOL 300MG IVAX [Suspect]
     Indication: BREAST CANCER
     Dosage: 153 Q7D IV DRIP
     Route: 041

REACTIONS (1)
  - GASTROINTESTINAL PERFORATION [None]
